FAERS Safety Report 4320856-0 (Version None)
Quarter: 2004Q1

REPORT INFORMATION
  Report Type: 
  Country: None (occurrence: None)
  Receive Date: 20040318
  Receipt Date: 20040302
  Transmission Date: 20041129
  Serious: Yes (Death, Hospitalization)
  Sender: FDA-Public Use
  Company Number: B0325995A

PATIENT
  Age: 39 Year
  Sex: Female

DRUGS (3)
  1. CEFAZOLIN [Suspect]
     Dosage: 12.5 MG/ML  / SEE DOSAGE TEXT / INTRATHEC
     Route: 037
  2. PETHIDINE HYDROCHLORIDE [Concomitant]
  3. PROMETHAZINE [Concomitant]

REACTIONS (5)
  - AGITATION [None]
  - BACK PAIN [None]
  - COMA [None]
  - CONFUSIONAL STATE [None]
  - CONVULSION [None]
